FAERS Safety Report 18114741 (Version 1)
Quarter: 2020Q3

REPORT INFORMATION
  Report Type: Spontaneous
  Country: CN (occurrence: CN)
  Receive Date: 20200805
  Receipt Date: 20200805
  Transmission Date: 20201103
  Serious: Yes (Other)
  Sender: FDA-Public Use
  Company Number: CN-PFIZER INC-2020292926

PATIENT
  Age: 67 Year
  Sex: Male
  Weight: 63.2 kg

DRUGS (5)
  1. LIPITOR [Suspect]
     Active Substance: ATORVASTATIN CALCIUM
     Indication: LIPIDS INCREASED
     Dosage: 20 MG, 1X/DAY
     Route: 048
     Dates: start: 20200512, end: 20200620
  2. HERBESSER [Suspect]
     Active Substance: DILTIAZEM HYDROCHLORIDE
     Indication: VASODILATATION
  3. SIGMART [Suspect]
     Active Substance: NICORANDIL
     Indication: VASODILATATION
  4. SIGMART [Suspect]
     Active Substance: NICORANDIL
     Indication: CARDIOVASCULAR EVENT PROPHYLAXIS
     Dosage: 5 MG, 3X/DAY
     Route: 048
     Dates: start: 20200512, end: 20200620
  5. HERBESSER [Suspect]
     Active Substance: DILTIAZEM HYDROCHLORIDE
     Indication: BLOOD PRESSURE INCREASED
     Dosage: 90 MG, 1X/DAY
     Route: 048
     Dates: start: 20200512, end: 20200620

REACTIONS (3)
  - Rash erythematous [Recovering/Resolving]
  - Peripheral swelling [Unknown]
  - Hepatic function abnormal [Recovering/Resolving]

NARRATIVE: CASE EVENT DATE: 20200610
